FAERS Safety Report 7224476-X (Version None)
Quarter: 2011Q1

REPORT INFORMATION
  Report Type: 
  Country: None (occurrence: None)
  Receive Date: 20110113
  Receipt Date: 20110107
  Transmission Date: 20110831
  Serious: No
  Sender: FDA-Public Use
  Company Number: US-PFIZER INC-2010088658

PATIENT
  Sex: Male
  Weight: 136.5 kg

DRUGS (9)
  1. VIAGRA [Suspect]
     Dosage: 100 MG, UNK
  2. LIPITOR [Concomitant]
  3. NEURONTIN [Concomitant]
  4. LISINOPRIL [Concomitant]
  5. METFORMIN [Concomitant]
  6. GLYBURIDE [Concomitant]
  7. ACETYLSALICYLIC ACID [Concomitant]
  8. ATENOLOL [Concomitant]
  9. HYDROCHLOROTHIAZIDE [Concomitant]

REACTIONS (1)
  - DRUG INEFFECTIVE [None]
